FAERS Safety Report 6982661-6 (Version None)
Quarter: 2010Q3

REPORT INFORMATION
  Report Type: 
  Country: None (occurrence: None)
  Receive Date: 20100914
  Receipt Date: 20100719
  Transmission Date: 20110219
  Serious: No
  Sender: FDA-Public Use
  Company Number: US-PFIZER INC-2010022872

PATIENT
  Sex: Female
  Weight: 86 kg

DRUGS (6)
  1. LYRICA [Suspect]
     Indication: BACK PAIN
     Dosage: 75 MG, 2X/DAY
     Dates: start: 20100215, end: 20100217
  2. LORTAB [Concomitant]
     Dosage: UNK
  3. FLEXERIL [Concomitant]
     Dosage: UNK
  4. RELIV [Concomitant]
     Indication: MEDICAL DIET
     Dosage: UNK
  5. PRAVASTATIN [Concomitant]
     Dosage: UNK
  6. TRICOR [Concomitant]
     Dosage: UNK

REACTIONS (4)
  - BACK PAIN [None]
  - FEELING DRUNK [None]
  - NECK PAIN [None]
  - SOMNOLENCE [None]
